FAERS Safety Report 23478318 (Version 1)
Quarter: 2024Q1

REPORT INFORMATION
  Report Type: Report from Study
  Country: CA (occurrence: CA)
  Receive Date: 20240204
  Receipt Date: 20240204
  Transmission Date: 20240409
  Serious: No
  Sender: FDA-Public Use
  Company Number: CA-IPSEN Group, Research and Development-2023-26060

PATIENT
  Sex: Male

DRUGS (15)
  1. CABOMETYX [Suspect]
     Active Substance: CABOZANTINIB S-MALATE
     Indication: Renal cell carcinoma
     Dosage: 60 MG, QD
     Route: 048
     Dates: start: 20210909
  2. CABOMETYX [Suspect]
     Active Substance: CABOZANTINIB S-MALATE
     Dosage: 40 MG, QD
     Route: 048
  3. SILDENAFIL [Concomitant]
     Active Substance: SILDENAFIL
  4. ALLOPURINOL [Concomitant]
     Active Substance: ALLOPURINOL
  5. PERINDOPRIL [Concomitant]
     Active Substance: PERINDOPRIL
  6. PREGABALIN [Concomitant]
     Active Substance: PREGABALIN
     Dosage: 150 + 75MG
  7. PREGABALIN [Concomitant]
     Active Substance: PREGABALIN
     Dosage: 75 MG
  8. LENOLTEC [Concomitant]
     Dosage: PRN
  9. SYNTHROID [Concomitant]
     Active Substance: LEVOTHYROXINE SODIUM
  10. MAGNESIUM OXIDE [Concomitant]
     Active Substance: MAGNESIUM OXIDE
  11. SUTENT [Concomitant]
     Active Substance: SUNITINIB MALATE
     Dosage: SPECIAL INSTRUCTIONS SUTENT 25MG,
  12. INLYTA [Concomitant]
     Active Substance: AXITINIB
  13. FLUZONE QUADRIVALENT NOS [Concomitant]
     Active Substance: INFLUENZA A VIRUS A/CALIFORNIA/7/2009 X-179A (H1N1) ANTIGEN (FORMALDEHYDE INACTIVATED)\INFLUENZA A V
     Dosage: MDV + 15MCG/0.5ML
  14. LENOLTEC NO 3 [Concomitant]
  15. SIV PERINDOPRIL ERBUMINE [Concomitant]

REACTIONS (3)
  - Taste disorder [Unknown]
  - Decreased appetite [Unknown]
  - Weight decreased [Unknown]
